FAERS Safety Report 20985280 (Version 4)
Quarter: 2022Q3

REPORT INFORMATION
  Report Type: Spontaneous
  Country: FR (occurrence: FR)
  Receive Date: 20220621
  Receipt Date: 20220927
  Transmission Date: 20221027
  Serious: Yes (Other)
  Sender: FDA-Public Use
  Company Number: FR-PIRAMAL CRITICAL CARE LIMITED-2022-PEL-000298

PATIENT

DRUGS (7)
  1. SEVOFLURANE [Suspect]
     Active Substance: SEVOFLURANE
     Indication: Anaesthesia
     Dosage: UNK (INCONNUE)
     Route: 055
     Dates: start: 20210623, end: 20210623
  2. SUFENTANIL [Suspect]
     Active Substance: SUFENTANIL
     Indication: Anaesthesia
     Dosage: UNKNOWN (INCONNUE)
     Route: 055
     Dates: start: 20210623, end: 20210623
  3. CEFAZOLIN [Suspect]
     Active Substance: CEFAZOLIN
     Indication: Antibiotic prophylaxis
     Dosage: UNK (INCONNUE)
     Route: 041
     Dates: start: 20210623, end: 20210623
  4. TRACRIUM [Suspect]
     Active Substance: ATRACURIUM BESYLATE
     Indication: Anaesthesia
     Dosage: UNK (INCONNUE)
     Route: 055
     Dates: start: 20210623, end: 20210623
  5. TRANEXAMIC ACID [Suspect]
     Active Substance: TRANEXAMIC ACID
     Indication: Prophylaxis
     Dosage: INCONNUE (UNKNOWN)
     Route: 055
     Dates: start: 20210623, end: 20210623
  6. PROPOFOL [Suspect]
     Active Substance: PROPOFOL
     Indication: Anaesthesia
     Dosage: UNK (INCONNUE)
     Route: 055
     Dates: start: 20210623, end: 20210623
  7. DEXAMETHASONE [Suspect]
     Active Substance: DEXAMETHASONE
     Indication: Prophylaxis
     Dosage: UNK (INCONNUE)
     Route: 055
     Dates: start: 20210623, end: 20210623

REACTIONS (1)
  - Hepatic cytolysis [Recovered/Resolved]

NARRATIVE: CASE EVENT DATE: 20210624
